FAERS Safety Report 9878438 (Version 2)
Quarter: 2014Q1

REPORT INFORMATION
  Report Type: Spontaneous
  Country: None (occurrence: US)
  Receive Date: 20140206
  Receipt Date: 20140206
  Transmission Date: 20141002
  Serious: No
  Sender: FDA-Public Use
  Company Number: US-ALLERGAN-1311296US

PATIENT
  Sex: Female

DRUGS (3)
  1. BOTOX COSMETIC [Suspect]
     Indication: SKIN WRINKLING
     Dosage: UNK, SINGLE
     Route: 030
     Dates: start: 201212, end: 201212
  2. DOXYCYCLINE [Concomitant]
     Indication: ROSACEA
     Dosage: 100 MG, QD
     Route: 048
     Dates: end: 201212
  3. DOXYCYCLINE [Concomitant]
     Dosage: 100 MG, BID
     Route: 048

REACTIONS (4)
  - Dry eye [Recovered/Resolved]
  - Sinus congestion [Recovered/Resolved]
  - Middle ear effusion [Recovered/Resolved]
  - Eyelid oedema [Recovered/Resolved]
